FAERS Safety Report 7197192-0 (Version None)
Quarter: 2010Q4

REPORT INFORMATION
  Report Type: 
  Country: None (occurrence: None)
  Receive Date: 20101224
  Receipt Date: 20101213
  Transmission Date: 20110411
  Serious: Yes (Hospitalization)
  Sender: FDA-Public Use
  Company Number: JP-AMGEN-JPNCT2010011108

PATIENT

DRUGS (3)
  1. PANITUMUMAB [Suspect]
     Indication: COLORECTAL CANCER
     Dosage: 6 MG/KG, Q2WK
     Route: 041
     Dates: start: 20100909, end: 20100922
  2. PANITUMUMAB [Suspect]
     Dosage: 6 MG/KG, Q2WK
     Route: 041
     Dates: start: 20101115
  3. BESOFTEN CREAM [Concomitant]
     Route: 062

REACTIONS (4)
  - CHOLANGITIS [None]
  - DERMATITIS ACNEIFORM [None]
  - HYPOCALCAEMIA [None]
  - HYPOKALAEMIA [None]
